FAERS Safety Report 16282125 (Version 2)
Quarter: 2019Q2

REPORT INFORMATION
  Report Type: Spontaneous
  Country: QA (occurrence: QA)
  Receive Date: 20190507
  Receipt Date: 20190514
  Transmission Date: 20190711
  Serious: Yes (Other)
  Sender: FDA-Public Use
  Company Number: PHHY2019QA101465

PATIENT
  Sex: Male

DRUGS (4)
  1. SOTALOL. [Suspect]
     Active Substance: SOTALOL
     Indication: FOETAL EXPOSURE DURING PREGNANCY
     Dosage: MOTHER DOSE-160MG TWICE DAILY FOR THE NEXT 4 DAYS
     Route: 064
  2. DIGOXIN. [Suspect]
     Active Substance: DIGOXIN
     Indication: FOETAL EXPOSURE DURING PREGNANCY
     Dosage: MOTHER DOSE-0.5 MG, FOLLOWED BY 0.25 MG 12 HOURLY
     Route: 064
  3. FLECAINIDE [Suspect]
     Active Substance: FLECAINIDE
     Indication: FOETAL EXPOSURE DURING PREGNANCY
     Dosage: MOTHER DOSE-100?150 MG GIVEN 2?3 TIMES PER DAY FOR 4 DAYS
     Route: 064
  4. AMIODARONE [Suspect]
     Active Substance: AMIODARONE
     Indication: FOETAL EXPOSURE DURING PREGNANCY
     Dosage: 800 MG 3 TIMES A DAY
     Route: 064

REACTIONS (3)
  - Premature baby [Unknown]
  - Treatment failure [Unknown]
  - Foetal exposure during pregnancy [Unknown]
